FAERS Safety Report 15773246 (Version 2)
Quarter: 2019Q1

REPORT INFORMATION
  Report Type: Spontaneous
  Country: US (occurrence: US)
  Receive Date: 20181228
  Receipt Date: 20190305
  Transmission Date: 20190417
  Serious: No
  Sender: FDA-Public Use
  Company Number: US-009507513-1812USA005412

PATIENT
  Age: 20 Year
  Sex: Female
  Weight: 45.81 kg

DRUGS (2)
  1. NEXPLANON [Suspect]
     Active Substance: ETONOGESTREL
     Dosage: 68MG/1 ROD EVERY 3 YEARS
     Route: 059
     Dates: start: 20181207
  2. NEXPLANON [Suspect]
     Active Substance: ETONOGESTREL
     Dosage: 68MG/1 ROD EVERY 3 YEARS
     Route: 059
     Dates: start: 20181207, end: 20181207

REACTIONS (2)
  - No adverse event [Unknown]
  - Product quality issue [Unknown]

NARRATIVE: CASE EVENT DATE: 20181207
